FAERS Safety Report 11211596 (Version 2)
Quarter: 2015Q3

REPORT INFORMATION
  Report Type: Report from Study
  Country: NL (occurrence: KE)
  Receive Date: 20150623
  Receipt Date: 20150707
  Transmission Date: 20151125
  Serious: Yes (Death, Other)
  Sender: FDA-Public Use
  Company Number: NL-ROCHE-1597591

PATIENT

DRUGS (5)
  1. CHLORAMPHENICOL [Concomitant]
     Active Substance: CHLORAMPHENICOL
     Indication: CEREBRAL MALARIA
     Route: 011
  2. QUININE DIHYDROCHLORIDE [Concomitant]
     Active Substance: QUININE HYDROCHLORIDE
     Route: 042
  3. PHENOBARBITAL. [Interacting]
     Active Substance: PHENOBARBITAL
     Indication: SEIZURE
     Dosage: INTRAVENOUS/INTRAMUSCULAR
     Route: 065
  4. DIAZEPAM. [Suspect]
     Active Substance: DIAZEPAM
     Indication: SEIZURE
     Route: 042
  5. QUININE DIHYDROCHLORIDE [Concomitant]
     Active Substance: QUININE HYDROCHLORIDE
     Indication: CEREBRAL MALARIA
     Dosage: LOADING DOSE
     Route: 042

REACTIONS (2)
  - Drug interaction [Unknown]
  - Respiratory arrest [Fatal]
